FAERS Safety Report 20052740 (Version 2)
Quarter: 2024Q3

REPORT INFORMATION
  Report Type: Report from Study
  Country: NL (occurrence: NL)
  Receive Date: 20211110
  Receipt Date: 20240717
  Transmission Date: 20241016
  Serious: Yes (Hospitalization)
  Sender: ALNYLAM PHARMACEUTICALS
  Company Number: NL-ALNYLAM PHARMACEUTICALS, INC.-ALN-2021-002858

PATIENT

DRUGS (17)
  1. GIVLAARI [Suspect]
     Active Substance: GIVOSIRAN SODIUM
     Indication: Porphyria acute
     Dosage: 109.25 MILLIGRAM
     Route: 065
     Dates: start: 20211025
  2. GIVLAARI [Suspect]
     Active Substance: GIVOSIRAN SODIUM
     Dosage: 109.25 MILLIGRAM, MONTHLY
     Route: 065
     Dates: start: 20210927
  3. CLONIDINE [Concomitant]
     Active Substance: CLONIDINE
     Indication: Porphyria acute
     Dosage: 0.075 MILLIGRAM, BID
     Route: 048
     Dates: start: 20210921
  4. CHOLECALCIFEROL [Concomitant]
     Active Substance: CHOLECALCIFEROL
     Indication: Vitamin D deficiency
     Dosage: 50000 IU INTERNATIONAL UNIT PER MILLILITRE, MONTHLY
     Route: 048
     Dates: start: 20210201
  5. FLUOXETINE [Concomitant]
     Active Substance: FLUOXETINE HYDROCHLORIDE
     Indication: Depression
     Dosage: 30 MILLIGRAM, QD
     Route: 048
     Dates: start: 20181023
  6. GABAPENTIN [Concomitant]
     Active Substance: GABAPENTIN
     Indication: Porphyria acute
     Dosage: 600 MILLIGRAM, TID
     Route: 048
     Dates: start: 20190804
  7. HALOPERIDOL [Concomitant]
     Active Substance: HALOPERIDOL
     Indication: Agitation
     Dosage: 1 MILLIGRAM, QD
     Route: 048
     Dates: start: 20210929
  8. HALOPERIDOL [Concomitant]
     Active Substance: HALOPERIDOL
     Indication: Insomnia
  9. IBUPROFEN [Concomitant]
     Active Substance: IBUPROFEN
     Indication: Porphyria acute
     Dosage: 200 MILLIGRAM, BID
     Route: 048
     Dates: start: 20210922
  10. OXAZEPAM [Concomitant]
     Active Substance: OXAZEPAM
     Indication: Agitation
     Dosage: 10 MILLIGRAM, TID IF NECESSARY
     Route: 048
     Dates: start: 20210924, end: 20211025
  11. PANTOPRAZOLE [Concomitant]
     Active Substance: PANTOPRAZOLE
     Indication: Gastritis prophylaxis
     Dosage: 40 MILLIGRAM, QID
     Route: 048
     Dates: start: 20210329
  12. ACETAMINOPHEN [Concomitant]
     Active Substance: ACETAMINOPHEN
     Indication: Porphyria acute
     Dosage: 1000 MILLIGRAM, QID
     Route: 048
     Dates: start: 20210403
  13. VITAMIN B [Concomitant]
     Active Substance: VITAMIN B
     Indication: Anaemia
     Dosage: UNK, QD
     Route: 048
     Dates: start: 20201001
  14. EPOETIN BETA [Concomitant]
     Active Substance: ERYTHROPOIETIN
     Indication: Nephrogenic anaemia
     Dosage: 2000 INTERNATIONAL UNIT, 2 TIMES A WEEK
     Route: 058
     Dates: start: 20211025
  15. EPOETIN BETA [Concomitant]
     Active Substance: ERYTHROPOIETIN
     Dosage: 2000 INTERNATIONAL UNIT, 3 TIMES PER WEEK
     Route: 058
     Dates: start: 20210201, end: 20211025
  16. BUPRENORPHINE [Concomitant]
     Active Substance: BUPRENORPHINE
     Indication: Porphyria acute
     Dosage: 5 MICROGRAM/HOUR, WEEKLY
     Route: 062
     Dates: start: 20211006
  17. BUPRENORPHINE [Concomitant]
     Active Substance: BUPRENORPHINE
     Dosage: 0.2 MILLIGRAM, BID IF NECESSARY
     Route: 060
     Dates: start: 20211005

REACTIONS (6)
  - Porphyria acute [Unknown]
  - Nail infection [Unknown]
  - Swelling face [Unknown]
  - Cellulitis [Unknown]
  - Weight decreased [Unknown]
  - Pneumonia [Unknown]
